FAERS Safety Report 25360579 (Version 2)
Quarter: 2025Q2

REPORT INFORMATION
  Report Type: Report from Study
  Country: ES (occurrence: ES)
  Receive Date: 20250527
  Receipt Date: 20250624
  Transmission Date: 20250717
  Serious: Yes (Hospitalization)
  Sender: BOEHRINGER INGELHEIM
  Company Number: ES-BoehringerIngelheim-2025-BI-011014

PATIENT
  Age: 84 Year
  Sex: Male

DRUGS (1)
  1. OFEV [Suspect]
     Active Substance: NINTEDANIB
     Indication: Idiopathic pulmonary fibrosis
     Dates: start: 20220110, end: 20250416

REACTIONS (3)
  - Gastrointestinal viral infection [Recovered/Resolved]
  - Anaemia [Not Recovered/Not Resolved]
  - Tooth infection [Recovering/Resolving]

NARRATIVE: CASE EVENT DATE: 20250301
